FAERS Safety Report 18589764 (Version 3)
Quarter: 2024Q2

REPORT INFORMATION
  Report Type: Other
  Country: BG (occurrence: None)
  Receive Date: 20201208
  Receipt Date: 20240411
  Transmission Date: 20240716
  Serious: No
  Sender: FDA-Public Use
  Company Number: BG-ROCHE-2709197

PATIENT
  Age: 53 Year
  Sex: Male
  Weight: 82 kg

DRUGS (20)
  1. OCRELIZUMAB [Suspect]
     Active Substance: OCRELIZUMAB
     Indication: Relapsing-remitting multiple sclerosis
     Route: 042
     Dates: start: 20200116, end: 20200116
  2. OCRELIZUMAB [Suspect]
     Active Substance: OCRELIZUMAB
     Route: 042
     Dates: start: 20200130, end: 20200130
  3. OCRELIZUMAB [Suspect]
     Active Substance: OCRELIZUMAB
     Route: 042
     Dates: start: 20200717, end: 20200717
  4. OCRELIZUMAB [Suspect]
     Active Substance: OCRELIZUMAB
     Route: 042
     Dates: start: 20220811, end: 20220811
  5. OCRELIZUMAB [Suspect]
     Active Substance: OCRELIZUMAB
     Route: 042
     Dates: start: 20230825, end: 20230825
  6. OCRELIZUMAB [Suspect]
     Active Substance: OCRELIZUMAB
     Route: 042
     Dates: start: 20210804, end: 20210804
  7. OCRELIZUMAB [Suspect]
     Active Substance: OCRELIZUMAB
     Route: 042
     Dates: start: 20220204, end: 20220204
  8. OCRELIZUMAB [Suspect]
     Active Substance: OCRELIZUMAB
     Route: 042
     Dates: start: 20210129, end: 20210129
  9. OCRELIZUMAB [Suspect]
     Active Substance: OCRELIZUMAB
     Route: 042
     Dates: start: 20240403, end: 20240403
  10. OCRELIZUMAB [Suspect]
     Active Substance: OCRELIZUMAB
     Route: 042
     Dates: start: 20230227, end: 20230227
  11. ACETAMINOPHEN [Concomitant]
     Active Substance: ACETAMINOPHEN
     Indication: Premedication
     Route: 048
     Dates: start: 20200116, end: 20200116
  12. ACETAMINOPHEN [Concomitant]
     Active Substance: ACETAMINOPHEN
     Route: 048
     Dates: start: 20200130, end: 20200130
  13. ACETAMINOPHEN [Concomitant]
     Active Substance: ACETAMINOPHEN
     Route: 048
     Dates: start: 20200717, end: 20200717
  14. ACETAMINOPHEN [Concomitant]
     Active Substance: ACETAMINOPHEN
     Route: 048
     Dates: start: 20201029, end: 202111
  15. METHYLPREDNISOLONE [Concomitant]
     Active Substance: METHYLPREDNISOLONE
     Indication: Premedication
     Dosage: ONCE BEFORE?INFUSION
     Route: 042
     Dates: start: 20200116, end: 20200116
  16. METHYLPREDNISOLONE [Concomitant]
     Active Substance: METHYLPREDNISOLONE
     Dosage: ONCE BEFORE?INFUSION
     Route: 042
     Dates: start: 20200130, end: 20200130
  17. METHYLPREDNISOLONE [Concomitant]
     Active Substance: METHYLPREDNISOLONE
     Dosage: ONCE BEFORE?INFUSION
     Route: 042
     Dates: start: 20200717, end: 20200717
  18. CALMABEN [Concomitant]
     Indication: Premedication
     Dosage: ONCE BEFORE?INFUSION
     Route: 048
     Dates: start: 20200116, end: 20200116
  19. CALMABEN [Concomitant]
     Dosage: ONCE BEFORE?INFUSION
     Route: 048
     Dates: start: 20200130, end: 20200130
  20. CALMABEN [Concomitant]
     Dosage: ONCE BEFORE?INFUSION
     Route: 048
     Dates: start: 20200717, end: 20200717

REACTIONS (1)
  - COVID-19 [Recovered/Resolved]

NARRATIVE: CASE EVENT DATE: 20201022
